FAERS Safety Report 8077801-4 (Version None)
Quarter: 2012Q1

REPORT INFORMATION
  Report Type: 
  Country: None (occurrence: None)
  Receive Date: 20120127
  Receipt Date: 20120120
  Transmission Date: 20120608
  Serious: Yes (Hospitalization, Other)
  Sender: FDA-Public Use
  Company Number: US-ABBOTT-12P-163-0895919-00

PATIENT
  Sex: Female
  Weight: 89.438 kg

DRUGS (12)
  1. BUPROPION HYDROCHLORIDE [Concomitant]
     Indication: BIPOLAR DISORDER
  2. TRAZODONE HCL [Concomitant]
     Indication: INSOMNIA
  3. HYDROCODONE [Concomitant]
     Indication: PAIN
  4. BUPROPION HYDROCHLORIDE [Concomitant]
     Indication: DEPRESSION
  5. LORAZEPAM [Concomitant]
     Indication: ANXIETY
  6. HUMIRA [Suspect]
     Indication: PSORIASIS
  7. PREMARIN [Concomitant]
     Indication: HYSTERECTOMY
  8. OXYGEN [Concomitant]
     Indication: PRODUCT USED FOR UNKNOWN INDICATION
  9. TACLONEX [Concomitant]
     Indication: PSORIASIS
  10. IPRATROPIUM BROMIDE AND ALBUTEROL SULFATE [Concomitant]
     Indication: EMPHYSEMA
     Dosage: VIAL
  11. HUMIRA [Suspect]
     Indication: CROHN'S DISEASE
     Dates: start: 20110301
  12. SERTRALINE HYDROCHLORIDE [Concomitant]
     Indication: DEPRESSION

REACTIONS (9)
  - ABDOMINAL HERNIA [None]
  - ALTERED STATE OF CONSCIOUSNESS [None]
  - GASTROINTESTINAL DISORDER [None]
  - ADHESION [None]
  - ANXIETY [None]
  - FAECALOMA [None]
  - BENIGN NEOPLASM [None]
  - PAIN [None]
  - VOMITING [None]
